FAERS Safety Report 9124980 (Version 2)
Quarter: 2013Q1

REPORT INFORMATION
  Report Type: Spontaneous
  Country: US (occurrence: US)
  Receive Date: 20130227
  Receipt Date: 20130228
  Transmission Date: 20140127
  Serious: Yes (Other)
  Sender: FDA-Public Use
  Company Number: US-009507513-1302USA013022

PATIENT
  Sex: Male

DRUGS (1)
  1. AFRIN NO DRIP SINUS [Suspect]
     Indication: NASAL CONGESTION
     Dosage: UNK, UNKNOWN
     Route: 045

REACTIONS (6)
  - Condition aggravated [Unknown]
  - Sneezing [Unknown]
  - Rhinorrhoea [Unknown]
  - Hypersensitivity [Unknown]
  - Nasal congestion [None]
  - Multiple allergies [None]
